FAERS Safety Report 11435689 (Version 1)
Quarter: 2015Q3

REPORT INFORMATION
  Report Type: Other
  Country: IT (occurrence: IT)
  Receive Date: 20150831
  Receipt Date: 20150831
  Transmission Date: 20151125
  Serious: Yes (Hospitalization)
  Sender: FDA-Public Use
  Company Number: IT-MYLANLABS-2015M1028371

PATIENT

DRUGS (3)
  1. IBUPROFEN LYSINATE [Suspect]
     Active Substance: IBUPROFEN LYSINE
     Indication: PRODUCT USED FOR UNKNOWN INDICATION
     Dosage: 3.6 G, TOTAL
     Route: 048
     Dates: start: 20150719, end: 20150719
  2. NEO BOROCILLINA                    /01573301/ [Suspect]
     Active Substance: DICHLOROBENZYL ALCOHOL\SODIUM BENZOATE
     Indication: PRODUCT USED FOR UNKNOWN INDICATION
     Dosage: 30 DF, TOTAL
     Route: 048
     Dates: start: 20150719, end: 20150719
  3. PARACETAMOL [Suspect]
     Active Substance: ACETAMINOPHEN
     Indication: PRODUCT USED FOR UNKNOWN INDICATION
     Dosage: 19 G, TOTAL
     Route: 048
     Dates: start: 20150719, end: 20150719

REACTIONS (4)
  - Intentional self-injury [Recovered/Resolved]
  - Drug abuse [Recovered/Resolved]
  - Intentional overdose [Unknown]
  - Toxicity to various agents [Recovered/Resolved]

NARRATIVE: CASE EVENT DATE: 20150719
